FAERS Safety Report 8456027-6 (Version None)
Quarter: 2012Q2

REPORT INFORMATION
  Report Type: 
  Country: None (occurrence: None)
  Receive Date: 20120323
  Receipt Date: 20110912
  Transmission Date: 20120825
  Serious: Yes (Hospitalization)
  Sender: FDA-Public Use
  Company Number: 163-21880-11082934

PATIENT
  Age: 61 Year
  Sex: Female

DRUGS (7)
  1. LENALIDOMIDE [Suspect]
     Indication: MULTIPLE MYELOMA
     Dosage: 10 MG, DAILY X 21 DAYS, PO
     Route: 048
     Dates: start: 20101028, end: 20110601
  2. ADDERALL XR 10 [Concomitant]
  3. VITAMIN D [Concomitant]
  4. PROZAC [Concomitant]
  5. VALTREX [Concomitant]
  6. BACTRIM DS [Concomitant]
  7. SYNTHROID [Concomitant]

REACTIONS (2)
  - PNEUMONIA [None]
  - PSEUDOMEMBRANOUS COLITIS [None]
